FAERS Safety Report 8185369-7 (Version None)
Quarter: 2012Q1

REPORT INFORMATION
  Report Type: 
  Country: None (occurrence: None)
  Receive Date: 20120305
  Receipt Date: 20120227
  Transmission Date: 20120608
  Serious: Yes (Hospitalization)
  Sender: FDA-Public Use
  Company Number: PHHY2012IT016726

PATIENT
  Sex: Male

DRUGS (3)
  1. AMOXICILLIN [Suspect]
     Indication: GOUT
     Dosage: 1 G, UNK
     Dates: start: 20110820, end: 20110830
  2. CANDESARTAN CILEXETIL [Concomitant]
     Dosage: 8 MG, UNK
  3. COLCHICINA ^LIRCA^ [Concomitant]
     Dosage: 1 MG, UNK

REACTIONS (4)
  - METABOLIC ACIDOSIS [None]
  - RENAL FAILURE ACUTE [None]
  - DIARRHOEA [None]
  - DYSPNOEA [None]
